FAERS Safety Report 5248897-X (Version None)
Quarter: 2007Q1

REPORT INFORMATION
  Report Type: 
  Country: None (occurrence: None)
  Receive Date: 20070228
  Receipt Date: 20060412
  Transmission Date: 20070707
  Serious: No
  Sender: FDA-Public Use
  Company Number: US-GLAXOSMITHKLINE-A0601585A

PATIENT
  Age: 85 Year
  Sex: Female

DRUGS (5)
  1. VALTREX [Suspect]
     Dosage: 1G THREE TIMES PER DAY
     Route: 048
     Dates: start: 20060410, end: 20060412
  2. SYNTHROID [Concomitant]
  3. PLAVIX [Concomitant]
  4. ENALAPRIL MALEATE [Concomitant]
  5. GLUCOTROL XL [Concomitant]

REACTIONS (1)
  - HEADACHE [None]
